FAERS Safety Report 9375938 (Version 2)
Quarter: 2013Q3

REPORT INFORMATION
  Report Type: Spontaneous
  Country: JP (occurrence: JP)
  Receive Date: 20130628
  Receipt Date: 20130704
  Transmission Date: 20140515
  Serious: Yes (Hospitalization)
  Sender: FDA-Public Use
  Company Number: JP-ASTRAZENECA-2013SE49098

PATIENT
  Age: 38 Year
  Sex: Male

DRUGS (5)
  1. SEROQUEL [Suspect]
     Route: 048
  2. MYSLEE [Suspect]
     Dosage: 63 TABLETS
     Route: 048
  3. MYSLEE [Suspect]
     Route: 048
     Dates: start: 20130619, end: 201306
  4. LANTUS [Suspect]
     Route: 058
  5. AMOBAN [Suspect]
     Route: 048

REACTIONS (3)
  - Intentional overdose [Unknown]
  - Blood glucose decreased [Recovered/Resolved]
  - Depressed level of consciousness [Recovered/Resolved]
